FAERS Safety Report 21212524 (Version 1)
Quarter: 2022Q3

REPORT INFORMATION
  Report Type: Spontaneous
  Country: US (occurrence: None)
  Receive Date: 20220814
  Receipt Date: 20220814
  Transmission Date: 20221027
  Serious: No
  Sender: FDA-Public Use
  Company Number: None

PATIENT
  Age: 34 Year
  Sex: Female

DRUGS (1)
  1. AMPHETAMINE\DEXTROAMPHETAMINE [Suspect]
     Active Substance: AMPHETAMINE\DEXTROAMPHETAMINE
     Indication: Attention deficit hyperactivity disorder
     Dosage: OTHER QUANTITY : 1 TABLET(S);?
     Route: 048
     Dates: start: 20220810, end: 20220814

REACTIONS (7)
  - Feeling abnormal [None]
  - Irritability [None]
  - Anxiety [None]
  - Nausea [None]
  - Headache [None]
  - Disturbance in attention [None]
  - Manufacturing issue [None]

NARRATIVE: CASE EVENT DATE: 20220811
